FAERS Safety Report 10047622 (Version 1)
Quarter: 2014Q1

REPORT INFORMATION
  Report Type: Spontaneous
  Country: US (occurrence: None)
  Receive Date: 20140328
  Receipt Date: 20140328
  Transmission Date: 20141002
  Serious: Yes (Hospitalization)
  Sender: FDA-Public Use
  Company Number: None

PATIENT
  Age: 61 Year
  Sex: Male
  Weight: 106 kg

DRUGS (25)
  1. CEFTAROLINE [Suspect]
     Indication: STAPHYLOCOCCAL BACTERAEMIA
     Route: 042
     Dates: start: 20130805, end: 20130909
  2. CEFTAROLINE [Suspect]
     Indication: ENDOCARDITIS
     Route: 042
     Dates: start: 20130805, end: 20130909
  3. CEFTAROLINE FOSAMIL [Concomitant]
  4. SODIUM CHLORIDE [Concomitant]
  5. ASPIRIN [Concomitant]
  6. ACETAMINOPHEN [Concomitant]
  7. OXYCODONE-ACETAMINOPHEN [Concomitant]
  8. TRAMADOL [Concomitant]
  9. AMIODARONE [Concomitant]
  10. PRAVASTATIN [Concomitant]
  11. METOPROLOL TARTRATE [Concomitant]
  12. DOCUSATE SODIUM [Concomitant]
  13. IBUPROFEN [Concomitant]
  14. PANTOPRAZOLE [Concomitant]
  15. THERAPEUTIC MULTIVITAMIN-MINERALS [Concomitant]
  16. LEVOTHYROXINE [Concomitant]
  17. ALBUTEROL [Concomitant]
  18. POLYETHYLENE GLYCOL [Concomitant]
  19. NYSTATIN POWDER [Concomitant]
  20. TRYSPIN BALSAM-CASTOR OIL [Concomitant]
  21. NITROGLYCERIN SUBLINGUAL [Concomitant]
  22. FLUCONAZOLE [Concomitant]
  23. AERO INHALE [Concomitant]
  24. INSULIN NPH HUMAN INJECTION [Concomitant]
  25. NYSTATIN OINTMENT [Concomitant]

REACTIONS (4)
  - Dermatitis exfoliative [None]
  - Toxicity to various agents [None]
  - Skin exfoliation [None]
  - Mucosal inflammation [None]
